FAERS Safety Report 10278285 (Version 2)
Quarter: 2014Q3

REPORT INFORMATION
  Report Type: Spontaneous
  Country: US (occurrence: US)
  Receive Date: 20140704
  Receipt Date: 20140915
  Transmission Date: 20150326
  Serious: No
  Sender: FDA-Public Use
  Company Number: US-PFIZER INC-2014182606

PATIENT
  Sex: Male

DRUGS (1)
  1. LYRICA [Suspect]
     Active Substance: PREGABALIN
     Dosage: UNK
     Dates: start: 201406

REACTIONS (9)
  - Streptococcal infection [Unknown]
  - Joint swelling [Unknown]
  - Erythema [Unknown]
  - Mobility decreased [Unknown]
  - Peripheral swelling [Unknown]
  - Blister [Unknown]
  - Disease progression [Unknown]
  - Dysarthria [Unknown]
  - Pain in extremity [Unknown]

NARRATIVE: CASE EVENT DATE: 201406
